FAERS Safety Report 18602126 (Version 3)
Quarter: 2022Q2

REPORT INFORMATION
  Report Type: Report from Study
  Country: AT (occurrence: AT)
  Receive Date: 20201210
  Receipt Date: 20220511
  Transmission Date: 20220721
  Serious: Yes (Other)
  Sender: FDA-Public Use
  Company Number: AT-ROCHE-2415586

PATIENT
  Age: 67 Year
  Sex: Female
  Weight: 89 kg

DRUGS (30)
  1. ANASTROZOLE [Suspect]
     Active Substance: ANASTROZOLE
     Indication: Breast cancer
     Dosage: 1 MILLIGRAM, QD(DATE OF MOST RECENT DOSE OF ANASTROZOLE: 14/MAY/2018)
     Route: 048
     Dates: start: 20170324
  2. ANASTROZOLE [Suspect]
     Active Substance: ANASTROZOLE
     Indication: Breast cancer metastatic
  3. ANASTROZOLE [Suspect]
     Active Substance: ANASTROZOLE
     Indication: Breast cancer
     Dosage: 1 MILLIGRAM, QD (DATE OF MOST RECENT DOSE OF ANASTROZOLE: 14/MAY/2018)
     Route: 048
     Dates: start: 20170324
  4. FULVESTRANT [Suspect]
     Active Substance: FULVESTRANT
     Indication: Breast cancer
     Dosage: 500 MILLIGRAM, Q2W(MOST RECENT DOSE OF FULVESTRANT PRIOR TO THE EVENT: 23/DEC/2018)
     Route: 030
     Dates: start: 20181128
  5. FULVESTRANT [Suspect]
     Active Substance: FULVESTRANT
     Indication: Breast cancer metastatic
  6. TRASTUZUMAB [Suspect]
     Active Substance: TRASTUZUMAB
     Indication: Breast cancer
     Dosage: 712 MILLIGRAM, 3XW(MOST RECENT DOSE OF TRASTUZUMAB PRIOR TO THE EVENT: 07/NOV/2018)
     Route: 042
     Dates: start: 20170324
  7. TRASTUZUMAB [Suspect]
     Active Substance: TRASTUZUMAB
     Indication: Breast cancer metastatic
     Dosage: 408 MILLIGRAM, 3XW (ON 24/APR/2020, MOST RECENT DOSE)
     Route: 042
     Dates: start: 20181219
  8. TRASTUZUMAB [Suspect]
     Active Substance: TRASTUZUMAB
     Dosage: 420 MILLIGRAM, 3XW
     Route: 042
     Dates: start: 20181128, end: 20181128
  9. TRASTUZUMAB [Suspect]
     Active Substance: TRASTUZUMAB
     Dosage: 438 MILLIGRAM, 3XW (MOST RECENT DOSE PRIOR TO THE EVENT: 19/DEC/2018)
     Route: 042
     Dates: start: 20181017, end: 20181017
  10. DOCETAXEL [Suspect]
     Active Substance: DOCETAXEL
     Indication: Breast cancer metastatic
     Dosage: 137 MILLIGRAM, 3XW (MOST RECENT DOSE OF DOCETAXEL PRIOR TO THE EVENT)
     Route: 042
     Dates: start: 20180608, end: 20180608
  11. PERTUZUMAB [Suspect]
     Active Substance: PERTUZUMAB
     Indication: Breast cancer
     Dosage: 840 MILLIGRAM, 3XW(MOST RECENT DOSE OF PERTUZUMAB PRIOR TO THE EVENT: 23/JUL/2018)
     Route: 042
     Dates: start: 20170324, end: 20170324
  12. PERTUZUMAB [Suspect]
     Active Substance: PERTUZUMAB
     Indication: Breast cancer metastatic
  13. FASLODEX [Suspect]
     Active Substance: FULVESTRANT
     Indication: Breast cancer
     Dosage: 500 MILLIGRAM, Q2W(MOST RECENT DOSE OF FULVESTRANT PRIOR TO THE EVENT: 23/DEC/2018)
     Route: 030
     Dates: start: 20181128
  14. TAXOTERE [Suspect]
     Active Substance: DOCETAXEL
     Indication: Breast cancer
     Dosage: 137 MILLIGRAM, 3XW(MOST RECENT DOSE OF DOCETAXEL PRIOR TO THE EVENT: 17/OCT/2018)
     Route: 042
     Dates: start: 20180608
  15. FOSTER [Concomitant]
     Active Substance: BECLOMETHASONE\FORMOTEROL
     Indication: Dyspnoea
     Dosage: UNK(ONGOING = CHECKED)
     Route: 065
     Dates: start: 20171120
  16. TORSEMIDE [Concomitant]
     Active Substance: TORSEMIDE
     Indication: Hypertension
     Dosage: UNK (ONGOING = CHECKED)
     Route: 065
     Dates: start: 20180214, end: 20190615
  17. RANITIDINE HYDROCHLORIDE [Concomitant]
     Active Substance: RANITIDINE HYDROCHLORIDE
     Dosage: UNK (ONGOING = CHECKED)
     Route: 065
     Dates: start: 20170414
  18. DEXABENE [Concomitant]
     Dosage: UNK (ONGOING = CHECKED)
     Route: 065
     Dates: start: 20181107
  19. KYTRIL [Concomitant]
     Active Substance: GRANISETRON HYDROCHLORIDE
     Dosage: UNK (ONGOING = CHECKED)
     Route: 065
     Dates: start: 20180608
  20. ACETAMINOPHEN [Concomitant]
     Active Substance: ACETAMINOPHEN
     Dosage: UNK (ONGOING = CHECKED)
     Route: 065
     Dates: start: 20180715
  21. DEXAMETHASONE [Concomitant]
     Active Substance: DEXAMETHASONE
     Dosage: UNK (ONGOING = CHECKED)
     Route: 065
     Dates: start: 20181017
  22. PANTOPRAZOLE [Concomitant]
     Active Substance: PANTOPRAZOLE
     Dosage: UNK (ONGOING = CHECKED)
     Route: 065
  23. BISOPROLOL FUMARATE [Concomitant]
     Active Substance: BISOPROLOL FUMARATE
     Indication: Hypertension
     Dosage: UNK (ONGOING = CHECKED)
     Route: 065
     Dates: start: 20180814
  24. POLYETHYLENE GLYCOL 3350\POTASSIUM CHLORIDE\SODIUM BICARBONATE\SODIUM [Concomitant]
     Active Substance: POLYETHYLENE GLYCOL 3350\POTASSIUM CHLORIDE\SODIUM BICARBONATE\SODIUM CHLORIDE
     Dosage: UNK (ONGOING = CHECKED)
     Route: 065
     Dates: start: 20180715
  25. DIMETHINDENE [Concomitant]
     Active Substance: DIMETHINDENE
     Dosage: UNK (ONGOING = CHECKED)
     Route: 065
     Dates: start: 20170414
  26. CALCIUM CARBONATE\CHOLECALCIFEROL [Concomitant]
     Active Substance: CALCIUM CARBONATE\CHOLECALCIFEROL
     Dosage: UNK (ONGOING = CHECKED)
     Route: 065
     Dates: start: 20170505
  27. HYDROCHLOROTHIAZIDE\RAMIPRIL [Concomitant]
     Active Substance: HYDROCHLOROTHIAZIDE\RAMIPRIL
     Dosage: UNK (ONGOING = CHECKED)
     Route: 065
     Dates: end: 20200424
  28. METAMIZOLE [Concomitant]
     Active Substance: METAMIZOLE
     Indication: Pain
     Dosage: UNK (ONGOING = CHECKED)
     Route: 065
     Dates: start: 20180715
  29. XGEVA [Concomitant]
     Active Substance: DENOSUMAB
     Dosage: UNK (ONGOING = CHECKED)
     Route: 065
     Dates: start: 20181017, end: 20201127
  30. ASPIRIN [Concomitant]
     Active Substance: ASPIRIN
     Indication: Hypertension
     Dosage: UNK (ONGOING = CHECKED)
     Dates: start: 20171120

REACTIONS (1)
  - Pulmonary oedema [Recovering/Resolving]

NARRATIVE: CASE EVENT DATE: 20190704
